FAERS Safety Report 7088834-9 (Version None)
Quarter: 2010Q4

REPORT INFORMATION
  Report Type: 
  Country: None (occurrence: None)
  Receive Date: 20101108
  Receipt Date: 20101027
  Transmission Date: 20110411
  Serious: Yes (Hospitalization)
  Sender: FDA-Public Use
  Company Number: PHHO2009NL06556

PATIENT
  Sex: Female
  Weight: 32.7 kg

DRUGS (1)
  1. ACZ885 ACZ+ [Suspect]
     Indication: JUVENILE ARTHRITIS
     Dosage: 140 MG, UNK
     Route: 058
     Dates: start: 20090126

REACTIONS (4)
  - ANAL EROSION [None]
  - ANORECTAL DISORDER [None]
  - COLONOSCOPY [None]
  - RECTAL HAEMORRHAGE [None]
